FAERS Safety Report 17819163 (Version 1)
Quarter: 2020Q2

REPORT INFORMATION
  Report Type: Spontaneous
  Country: SA (occurrence: SA)
  Receive Date: 20200523
  Receipt Date: 20200523
  Transmission Date: 20200714
  Serious: Yes (Death, Other)
  Sender: FDA-Public Use
  Company Number: SA-ABBVIE-20K-259-3416173-00

PATIENT
  Age: 48 Year
  Sex: Male

DRUGS (10)
  1. CARFILZOMIB [Suspect]
     Active Substance: CARFILZOMIB
     Dosage: ON DAY 8
     Route: 065
     Dates: start: 20190410, end: 20190410
  2. CARFILZOMIB [Suspect]
     Active Substance: CARFILZOMIB
     Dosage: ON DAY 22
     Route: 065
     Dates: start: 20190422, end: 20190422
  3. DEXAMETHASONE. [Suspect]
     Active Substance: DEXAMETHASONE
     Route: 065
     Dates: start: 20190403, end: 201906
  4. CARFILZOMIB [Suspect]
     Active Substance: CARFILZOMIB
     Dosage: ON DAY 1
     Route: 065
     Dates: start: 20190403, end: 20190403
  5. CARFILZOMIB [Suspect]
     Active Substance: CARFILZOMIB
     Route: 065
     Dates: end: 201906
  6. VENETOCLAX. [Suspect]
     Active Substance: VENETOCLAX
     Indication: PLASMA CELL MYELOMA
     Route: 048
     Dates: start: 20190403, end: 201906
  7. VENETOCLAX. [Suspect]
     Active Substance: VENETOCLAX
     Dosage: ESCALATED TO 600 MG PER DAY OVER A PERIOD OF 1 MONTHS
     Route: 048
     Dates: end: 201906
  8. DEXAMETHASONE. [Suspect]
     Active Substance: DEXAMETHASONE
     Route: 065
     Dates: start: 20170604, end: 201708
  9. DEXAMETHASONE. [Suspect]
     Active Substance: DEXAMETHASONE
     Indication: PLASMA CELL MYELOMA
     Route: 065
     Dates: start: 20170501
  10. CARFILZOMIB [Suspect]
     Active Substance: CARFILZOMIB
     Indication: PLASMA CELL MYELOMA
     Route: 065
     Dates: start: 20181202, end: 201901

REACTIONS (2)
  - Multiple organ dysfunction syndrome [Fatal]
  - Plasma cell myeloma [Unknown]

NARRATIVE: CASE EVENT DATE: 2019
